FAERS Safety Report 6602883-3 (Version None)
Quarter: 2010Q1

REPORT INFORMATION
  Report Type: 
  Country: None (occurrence: None)
  Receive Date: 20100226
  Receipt Date: 20100212
  Transmission Date: 20100710
  Serious: Yes (Hospitalization)
  Sender: FDA-Public Use
  Company Number: US-ELI_LILLY_AND_COMPANY-US201002004503

PATIENT
  Sex: Female

DRUGS (16)
  1. FORTEO [Suspect]
     Indication: OSTEOPOROSIS
     Dosage: 20 UG, DAILY (1/D)
     Route: 065
     Dates: start: 20090101
  2. TENORMIN [Concomitant]
     Dosage: UNK, UNKNOWN
     Route: 065
  3. SYNTHROID [Concomitant]
     Dosage: UNK, UNKNOWN
     Route: 065
  4. PROTONIX [Concomitant]
     Dosage: 40 MG, 2/D
     Route: 065
  5. ASPIRIN [Concomitant]
     Dosage: 81 MG, UNKNOWN
     Route: 065
  6. FISH OIL [Concomitant]
     Dosage: UNK, UNKNOWN
     Route: 065
  7. FLAXSEED OIL [Concomitant]
     Dosage: UNK, UNKNOWN
     Route: 065
  8. CALCIUM [Concomitant]
     Dosage: UNK, UNKNOWN
     Route: 065
  9. VITAMIN D [Concomitant]
     Dosage: UNK, UNKNOWN
     Route: 065
  10. VITAMIN B COMPLEX CAP [Concomitant]
     Dosage: 50 MG, UNKNOWN
     Route: 065
  11. GLUCOSAMINE [Concomitant]
     Dosage: UNK, UNKNOWN
     Route: 065
  12. CHONDROITIN [Concomitant]
     Dosage: UNK, UNKNOWN
     Route: 065
  13. VITAMIN C [Concomitant]
     Dosage: UNK, UNKNOWN
     Route: 065
  14. CENTRUM SILVER [Concomitant]
     Dosage: UNK, UNKNOWN
     Route: 065
  15. BONIVA [Concomitant]
     Dosage: UNK, UNKNOWN
     Route: 065
  16. ACTONEL [Concomitant]
     Dosage: UNK, UNKNOWN
     Route: 065

REACTIONS (6)
  - BLOOD PRESSURE SYSTOLIC DECREASED [None]
  - CONDUCTION DISORDER [None]
  - DRUG DOSE OMISSION [None]
  - GASTROOESOPHAGEAL REFLUX DISEASE [None]
  - HYPERCHLORHYDRIA [None]
  - PALPITATIONS [None]
